FAERS Safety Report 7273638-4 (Version None)
Quarter: 2010Q4

REPORT INFORMATION
  Report Type: 
  Country: None (occurrence: None)
  Receive Date: 20101130
  Receipt Date: 20091109
  Transmission Date: 20110411
  Serious: Yes (Hospitalization, Disabling, Other)
  Sender: FDA-Public Use
  Company Number: 2009SP035179

PATIENT
  Age: 34 Year
  Sex: Female
  Weight: 61.2356 kg

DRUGS (8)
  1. NUVARING [Suspect]
     Indication: CONTRACEPTION
     Dosage: VAG
     Route: 067
     Dates: start: 20060701, end: 20071101
  2. LEVAQUIN [Suspect]
     Indication: KIDNEY INFECTION
     Dates: start: 20070816
  3. ALBUTEROL [Concomitant]
  4. XOPENEX [Concomitant]
  5. ZOLOFT [Concomitant]
  6. DIET PILL [Concomitant]
  7. ANTIBIOTIC [Concomitant]
  8. IBUPROFEN [Concomitant]

REACTIONS (9)
  - ADVERSE DRUG REACTION [None]
  - CEREBROVASCULAR ACCIDENT [None]
  - DEPRESSION [None]
  - DRUG HYPERSENSITIVITY [None]
  - DYSAESTHESIA [None]
  - HYPERGLYCAEMIA [None]
  - KIDNEY INFECTION [None]
  - TRANSIENT ISCHAEMIC ATTACK [None]
  - URINARY TRACT INFECTION [None]
